FAERS Safety Report 13615316 (Version 1)
Quarter: 2017Q2

REPORT INFORMATION
  Report Type: Spontaneous
  Country: US (occurrence: US)
  Receive Date: 20170606
  Receipt Date: 20170606
  Transmission Date: 20170830
  Serious: Yes (Hospitalization, Other)
  Sender: FDA-Public Use
  Company Number: US-GLAXOSMITHKLINE-US2017085058

PATIENT
  Age: 75 Year
  Sex: Female

DRUGS (12)
  1. FUROSEMIDE. [Concomitant]
     Active Substance: FUROSEMIDE
  2. AMIODARONE [Concomitant]
     Active Substance: AMIODARONE
  3. ASPIRIN. [Concomitant]
     Active Substance: ASPIRIN
  4. WARFARIN [Concomitant]
     Active Substance: WARFARIN
  5. LISINOPRIL. [Concomitant]
     Active Substance: LISINOPRIL
  6. MELOXICAM. [Concomitant]
     Active Substance: MELOXICAM
  7. METOPROLOL. [Concomitant]
     Active Substance: METOPROLOL
  8. BREO ELLIPTA [Suspect]
     Active Substance: FLUTICASONE FUROATE\VILANTEROL TRIFENATATE
     Indication: CHRONIC OBSTRUCTIVE PULMONARY DISEASE
     Dosage: 1 PUFF(S), QD
     Route: 055
  9. OMEPRAZOLE. [Concomitant]
     Active Substance: OMEPRAZOLE
  10. LOVASTATIN. [Concomitant]
     Active Substance: LOVASTATIN
  11. CITALOPRAM [Concomitant]
     Active Substance: CITALOPRAM HYDROBROMIDE
  12. INCRUSE ELLIPTA [Suspect]
     Active Substance: UMECLIDINIUM BROMIDE
     Indication: CHRONIC OBSTRUCTIVE PULMONARY DISEASE
     Dosage: 1 PUFF(S), QD
     Route: 055

REACTIONS (3)
  - Cardiac failure [Recovering/Resolving]
  - Drug ineffective [Recovering/Resolving]
  - Dyspnoea [Recovering/Resolving]

NARRATIVE: CASE EVENT DATE: 201705
